FAERS Safety Report 9246452 (Version 1)
Quarter: 2013Q2

REPORT INFORMATION
  Report Type: Spontaneous
  Country: US (occurrence: US)
  Receive Date: 20130422
  Receipt Date: 20130422
  Transmission Date: 20140414
  Serious: Yes (Hospitalization)
  Sender: FDA-Public Use
  Company Number: US-ABBOTT-12P-163-1001622-00

PATIENT
  Age: 10 Year
  Sex: Female
  Weight: 35.41 kg

DRUGS (4)
  1. LUPRON DEPOT-PED (3 MONTH) [Suspect]
     Indication: PRECOCIOUS PUBERTY
     Route: 030
     Dates: start: 20120907
  2. GLUCAGON [Concomitant]
     Indication: DIABETES MELLITUS
  3. LANTUS [Concomitant]
     Indication: DIABETES MELLITUS
     Dosage: SUBCUTANEOUS
     Route: 055
  4. HUMOLOG [Concomitant]
     Indication: DIABETES MELLITUS

REACTIONS (4)
  - Diabetes mellitus [Not Recovered/Not Resolved]
  - Pyrexia [Recovered/Resolved]
  - Injection site pain [Recovered/Resolved]
  - Gait disturbance [Recovered/Resolved]
